FAERS Safety Report 6411959-5 (Version None)
Quarter: 2009Q4

REPORT INFORMATION
  Report Type: 
  Country: None (occurrence: None)
  Receive Date: 20091023
  Receipt Date: 20091016
  Transmission Date: 20100525
  Serious: Yes (Other)
  Sender: FDA-Public Use
  Company Number: JP-JNJFOC-20091005744

PATIENT
  Sex: Female
  Weight: 31 kg

DRUGS (9)
  1. ITRIZOLE [Suspect]
     Indication: PULMONARY MYCOSIS
     Route: 042
     Dates: start: 20080410, end: 20080411
  2. ALFAROL [Concomitant]
     Indication: OSTEOPOROSIS
     Route: 048
  3. CODEINE PHOSPHATE [Concomitant]
     Indication: BRONCHITIS CHRONIC
     Route: 048
  4. KLARICID [Concomitant]
     Indication: BRONCHITIS CHRONIC
     Route: 048
  5. MUCOSTA [Concomitant]
     Indication: PROPHYLAXIS
     Route: 048
  6. SENNOSIDE [Concomitant]
     Indication: CONSTIPATION
     Route: 048
  7. BEPRIDIL HYDROCHLORIDE [Concomitant]
     Indication: ARRHYTHMIA
     Route: 048
  8. LANIRAPID [Concomitant]
     Indication: ARRHYTHMIA
     Route: 048
  9. RHYTHMY [Concomitant]
     Indication: INSOMNIA
     Route: 048

REACTIONS (3)
  - BLOOD ALKALINE PHOSPHATASE INCREASED [None]
  - DELUSION [None]
  - HALLUCINATION, VISUAL [None]
